FAERS Safety Report 15540498 (Version 3)
Quarter: 2021Q2

REPORT INFORMATION
  Report Type: Spontaneous
  Country: US (occurrence: US)
  Receive Date: 20181023
  Receipt Date: 20210604
  Transmission Date: 20210716
  Serious: No
  Sender: FDA-Public Use
  Company Number: US-PFIZER INC-2018423598

PATIENT
  Age: 62 Year
  Sex: Female

DRUGS (6)
  1. PREMARIN [Suspect]
     Active Substance: ESTROGENS, CONJUGATED
     Indication: PAIN
     Dosage: 1 DF, 1X/DAY (1 APPLICATION AT BEDTIME 90 DAYS)
     Route: 067
  2. PREMARIN [Suspect]
     Active Substance: ESTROGENS, CONJUGATED
     Indication: NERVE INJURY
  3. PREMARIN [Suspect]
     Active Substance: ESTROGENS, CONJUGATED
     Indication: ENDOCRINE DISORDER
  4. LEVOTHYROXINE SODIUM. [Concomitant]
     Active Substance: LEVOTHYROXINE SODIUM
     Dosage: 100 UG (1 TABLET), 1X/DAY (IN THE MORNING ON AN EMPTY STOMACH)
     Route: 048
  5. PREMARIN [Suspect]
     Active Substance: ESTROGENS, CONJUGATED
     Indication: FIBROMYALGIA
     Dosage: 1 DF, 1X/DAY (1 APPLICATION AT BEDTIME)
     Route: 067
     Dates: start: 20191127
  6. LEVOTHYROXINE SODIUM. [Concomitant]
     Active Substance: LEVOTHYROXINE SODIUM
     Dosage: 112 UG (1 TABLET), 1X/DAY (IN THE MORNING ON AN EMPTY STOMACH)
     Route: 048

REACTIONS (3)
  - Feeling abnormal [Unknown]
  - Pain [Unknown]
  - Off label use [Unknown]
